FAERS Safety Report 6085799-3 (Version None)
Quarter: 2009Q1

REPORT INFORMATION
  Report Type: 
  Country: None (occurrence: None)
  Receive Date: 20090220
  Receipt Date: 20090210
  Transmission Date: 20090719
  Serious: Yes (Hospitalization)
  Sender: FDA-Public Use
  Company Number: JP-SANOFI-SYNTHELABO-A01200901389

PATIENT
  Age: 60 Year
  Sex: Male

DRUGS (5)
  1. AVASTIN [Suspect]
     Dosage: 5 MG/KG
     Route: 041
     Dates: start: 20090109, end: 20090109
  2. IRINOTECAN HYDROCHLORIDE [Suspect]
     Dosage: UNK
     Route: 041
  3. CALCIUM LEVOFOLINATE [Suspect]
     Dosage: UNK
     Route: 041
  4. FLUOROURACIL [Suspect]
     Dosage: UNK
     Dates: start: 20090109, end: 20090109
  5. ELPLAT [Suspect]
     Indication: RECTAL CANCER
     Dosage: UNK
     Route: 041
     Dates: start: 20090109, end: 20090109

REACTIONS (1)
  - GASTROINTESTINAL PERFORATION [None]
